FAERS Safety Report 20834578 (Version 2)
Quarter: 2022Q2

REPORT INFORMATION
  Report Type: Report from Study
  Country: CO (occurrence: CO)
  Receive Date: 20220516
  Receipt Date: 20220531
  Transmission Date: 20220721
  Serious: Yes (Hospitalization)
  Sender: FDA-Public Use
  Company Number: CO-NOVARTISPH-NVSC2022CO110454

PATIENT
  Sex: Male
  Weight: 85 kg

DRUGS (4)
  1. COSENTYX [Suspect]
     Active Substance: SECUKINUMAB
     Indication: Psoriasis
     Dosage: 300 MG, QMO (START DATE APPROXIMATELY ONE YEAR AGO)
     Route: 058
     Dates: end: 202112
  2. COSENTYX [Suspect]
     Active Substance: SECUKINUMAB
     Dosage: 300 MG, QMO
     Route: 058
     Dates: start: 202201
  3. LOSARTAN [Suspect]
     Active Substance: LOSARTAN
     Indication: Hypertension
     Dosage: 50 MG, Q12H  (24 HOURS 5 YEARS AGO (DOES NOT REPORT EXACT DATE)
     Route: 065
  4. METFORMIN [Suspect]
     Active Substance: METFORMIN HYDROCHLORIDE
     Indication: Diabetes mellitus
     Dosage: 850 MG (24 HOURS 5 YEARS AGO (DOES NOT REPORT EXACT DATE)
     Route: 048

REACTIONS (7)
  - General physical health deterioration [Unknown]
  - Hypertension [Unknown]
  - Myocardial infarction [Unknown]
  - Skin lesion [Recovered/Resolved]
  - Choking sensation [Unknown]
  - Fatigue [Unknown]
  - Product distribution issue [Unknown]
